FAERS Safety Report 17252927 (Version 1)
Quarter: 2020Q1

REPORT INFORMATION
  Report Type: Spontaneous
  Country: US (occurrence: US)
  Receive Date: 20200109
  Receipt Date: 20200109
  Transmission Date: 20200409
  Serious: No
  Sender: FDA-Public Use
  Company Number: US-ABBVIE-19S-163-2703060-00

PATIENT
  Age: 65 Year
  Sex: Female

DRUGS (1)
  1. DUOPA [Suspect]
     Active Substance: CARBIDOPA\LEVODOPA
     Indication: PARKINSON^S DISEASE
     Route: 050
     Dates: start: 201703

REACTIONS (3)
  - Stoma site reaction [Recovered/Resolved]
  - Excessive granulation tissue [Recovering/Resolving]
  - Stoma site discomfort [Recovered/Resolved]

NARRATIVE: CASE EVENT DATE: 201808
